FAERS Safety Report 9560558 (Version 1)
Quarter: 2013Q3

REPORT INFORMATION
  Report Type: Spontaneous
  Country: US (occurrence: None)
  Receive Date: 20130906
  Receipt Date: 20130906
  Transmission Date: 20140515
  Serious: No
  Sender: FDA-Public Use
  Company Number: 163-POMAL-13054250

PATIENT
  Age: 69 Year
  Sex: Male

DRUGS (9)
  1. POMALYST [Suspect]
     Indication: PLASMA CELL MYELOMA
     Dosage: 21 IN 21 D
     Route: 048
     Dates: start: 20130301
  2. ACYCLOVIR (ACICLOVIR) (ACICLOVIR) [Concomitant]
  3. ASPIRIN (ACETYLSALICYLIC ACID) [Concomitant]
  4. BACTRIM DS (BACTRIM) [Concomitant]
  5. GABAPENTIN (GABAPENTIN) [Concomitant]
  6. HYDROCHLOROTHIAZIDE (HYDROCHLOROTHIAZIDE) [Concomitant]
  7. KLOR-CON M10 (POTASSIUM CHLORIDE) [Concomitant]
  8. LEVAQUIN (LEVOFLOXACIN) [Concomitant]
  9. NORVASC (AMLODIPINE BESILATE) [Concomitant]

REACTIONS (1)
  - Bronchitis [None]
